FAERS Safety Report 13738069 (Version 2)
Quarter: 2017Q4

REPORT INFORMATION
  Report Type: Spontaneous
  Country: IT (occurrence: IT)
  Receive Date: 20170710
  Receipt Date: 20171124
  Transmission Date: 20180320
  Serious: Yes (Hospitalization, Other)
  Sender: FDA-Public Use
  Company Number: IT-PFIZER INC-2017297273

PATIENT
  Age: 49 Year
  Sex: Female

DRUGS (4)
  1. EFFEXOR XR [Suspect]
     Active Substance: VENLAFAXINE HYDROCHLORIDE
     Dosage: UNK
     Route: 048
  2. EFFEXOR XR [Suspect]
     Active Substance: VENLAFAXINE HYDROCHLORIDE
     Dosage: 375 MG, TOTAL
     Route: 048
     Dates: start: 20170512, end: 20170512
  3. EN [Suspect]
     Active Substance: DELORAZEPAM
     Dosage: 200 MG, TOTAL
     Route: 048
     Dates: start: 20170512, end: 20170512
  4. EN [Suspect]
     Active Substance: DELORAZEPAM
     Dosage: UNK
     Route: 048

REACTIONS (2)
  - Drug abuse [Recovered/Resolved]
  - Suicide attempt [Recovered/Resolved]

NARRATIVE: CASE EVENT DATE: 20170512
